FAERS Safety Report 14363553 (Version 4)
Quarter: 2018Q2

REPORT INFORMATION
  Report Type: Spontaneous
  Country: GB (occurrence: GB)
  Receive Date: 20180108
  Receipt Date: 20180530
  Transmission Date: 20180711
  Serious: Yes (Disabling, Other)
  Sender: FDA-Public Use
  Company Number: GB-TEVA-2018-GB-843401

PATIENT
  Age: 83 Year
  Sex: Female

DRUGS (23)
  1. METRONIDAZOLE. [Suspect]
     Active Substance: METRONIDAZOLE
     Indication: DIVERTICULITIS
     Dosage: 400 MILLIGRAM DAILY;
     Route: 065
     Dates: start: 201706
  2. PREDNISOLONE 5 MG TABLETS [Concomitant]
     Dosage: 1 MILLIGRAM DAILY;
     Route: 065
     Dates: start: 20060726
  3. ASPIRIN 75 MG DISPERSIBLE TABLETS [Concomitant]
     Indication: DIVERTICULITIS
     Route: 065
     Dates: start: 20131030
  4. FLECAINIDE 50 MG TABLETS [Concomitant]
     Indication: POLYMYALGIA RHEUMATICA
     Dosage: 25 MILLIGRAM DAILY;
     Route: 065
     Dates: start: 20090521
  5. BISOPROLOL 2.5 MG TABLETS [Concomitant]
     Active Substance: BISOPROLOL
     Indication: POLYMYALGIA RHEUMATICA
     Dosage: 2.5 MILLIGRAM DAILY;
     Route: 065
     Dates: start: 20090612
  6. METRONIDAZOLE. [Suspect]
     Active Substance: METRONIDAZOLE
     Indication: DIVERTICULITIS
     Dosage: 400 MILLIGRAM DAILY;
     Route: 065
     Dates: start: 201704
  7. METRONIDAZOLE. [Suspect]
     Active Substance: METRONIDAZOLE
     Indication: DIVERTICULITIS
     Dosage: 400 MILLIGRAM DAILY;
     Route: 065
     Dates: start: 201708
  8. METRONIDAZOLE TABLETS 400MG [Suspect]
     Active Substance: METRONIDAZOLE
     Indication: SEPSIS
     Dosage: 400 MILLIGRAM DAILY;
     Route: 065
  9. LANSOPRAZOLE 30 MG GASTRO-RESISTANT CAPSULES [Concomitant]
     Indication: PRODUCT USED FOR UNKNOWN INDICATION
     Dosage: 30 MILLIGRAM DAILY;
     Route: 065
     Dates: start: 20140429
  10. RIVAROXABAN 15 MG TABLETS [Concomitant]
     Dosage: ONE TABLET, 4MG, THREE TIMES DAILY WHEN REQUIRED
     Route: 065
     Dates: start: 20161017
  11. FERROUS SULFATE 200 MG TABLETS [Concomitant]
     Indication: ANAEMIA
     Dosage: 200 MILLIGRAM DAILY;
     Route: 065
     Dates: start: 20161021
  12. PREDNISOLONE 5 MG TABLETS [Concomitant]
     Indication: PRODUCT USED FOR UNKNOWN INDICATION
     Dosage: 5 MILLIGRAM DAILY;
     Route: 065
     Dates: start: 20170523
  13. FLECAINIDE 50 MG TABLETS [Concomitant]
     Indication: ATRIAL FIBRILLATION
     Dosage: 50 MILLIGRAM DAILY; 50 MG TABLETS, HALF TWICE DAILY
     Route: 065
     Dates: start: 20090521
  14. RIVAROXABAN 15 MG TABLETS [Concomitant]
     Indication: ATRIAL FLUTTER
     Route: 065
     Dates: start: 20160607
  15. METRONIDAZOLE. [Suspect]
     Active Substance: METRONIDAZOLE
     Indication: DIVERTICULITIS
     Dosage: 400 MILLIGRAM DAILY;
     Route: 065
     Dates: start: 20170222
  16. RIVAROXABAN 15 MG TABLETS [Concomitant]
     Indication: INTERNATIONAL NORMALISED RATIO
     Route: 065
     Dates: start: 20160607
  17. FENTANYL 12 MICROGRAMS/HOUR TRANSDERMAL PATCHES [Concomitant]
     Indication: PRODUCT USED FOR UNKNOWN INDICATION
     Dosage: 12 MICROGRAMS/HOUR
     Route: 065
     Dates: start: 20160413
  18. ASPIRIN 75 MG DISPERSIBLE TABLETS [Concomitant]
     Indication: TYPE 2 DIABETES MELLITUS
     Dosage: 75 MILLIGRAM DAILY;
     Route: 065
     Dates: start: 20131030
  19. COLECALCIFEROL 400 UNIT/ CALCIUM CARBONATE 1.25 G CHEWABLE TABLETS [Concomitant]
     Indication: POLYMYALGIA RHEUMATICA
     Dosage: COLECALCIFEROL 400 UNIT/ CALCIUM CARBONATE 1.25 G, ONE TABLET DAILY IN THE MORNING
     Route: 065
     Dates: start: 20161124
  20. ONDANSETRON 4 MG TABLETS [Concomitant]
     Indication: PRODUCT USED FOR UNKNOWN INDICATION
     Dosage: ONE TABLET, 4MG, THREE TIMES DAILY WHEN REQUIRED
     Route: 065
     Dates: start: 20161017
  21. NITROFURANTOIN. [Suspect]
     Active Substance: NITROFURANTOIN
     Indication: PRODUCT USED FOR UNKNOWN INDICATION
     Route: 065
  22. RIVAROXABAN 15 MG TABLETS [Concomitant]
     Indication: TRANSIENT ISCHAEMIC ATTACK
     Dosage: 15 MILLIGRAM DAILY;
     Route: 065
     Dates: start: 20160607
  23. LEVOTHYROXINE SODIUM 100 MICROGRAM TABLETS [Concomitant]
     Indication: HYPOTHYROIDISM
     Dosage: 100 MICROGRAM DAILY;
     Route: 065
     Dates: start: 20040824

REACTIONS (5)
  - Hypoaesthesia [Not Recovered/Not Resolved]
  - Fine motor skill dysfunction [Not Recovered/Not Resolved]
  - Peripheral sensorimotor neuropathy [Not Recovered/Not Resolved]
  - Paraesthesia [Not Recovered/Not Resolved]
  - Gait disturbance [Not Recovered/Not Resolved]

NARRATIVE: CASE EVENT DATE: 2017
